FAERS Safety Report 8289534-X (Version None)
Quarter: 2012Q2

REPORT INFORMATION
  Report Type: 
  Country: None (occurrence: None)
  Receive Date: 20120417
  Receipt Date: 20120406
  Transmission Date: 20120825
  Serious: Yes (Hospitalization, Disabling)
  Sender: FDA-Public Use
  Company Number: FR-BRISTOL-MYERS SQUIBB COMPANY-16513350

PATIENT
  Age: 86 Year
  Sex: Female

DRUGS (1)
  1. COUMADIN [Suspect]
     Dosage: 1.5 TABLET ON DAYS 1 AND 2, THEN 1.75 TABLET ON DAY 3
     Route: 048

REACTIONS (3)
  - CEREBRAL HAEMATOMA [None]
  - HEADACHE [None]
  - CONFUSIONAL STATE [None]
